FAERS Safety Report 8817337 (Version 2)
Quarter: 2013Q1

REPORT INFORMATION
  Report Type: Spontaneous
  Country: GB (occurrence: GB)
  Receive Date: 20121004
  Receipt Date: 20130118
  Transmission Date: 20140127
  Serious: Yes (Life-Threatening, Hospitalization, Disabling, Other)
  Sender: FDA-Public Use
  Company Number: PHHY2012GB085531

PATIENT
  Age: 36 Year
  Sex: Female
  Weight: 67 kg

DRUGS (1)
  1. CITALOPRAM [Suspect]
     Dosage: 20-40 MG
     Route: 048
     Dates: start: 20080510, end: 20110403

REACTIONS (7)
  - Psychotic disorder [Recovered/Resolved with Sequelae]
  - Alcoholism [Recovered/Resolved with Sequelae]
  - Myoclonus [Recovered/Resolved with Sequelae]
  - Suicide attempt [Recovered/Resolved with Sequelae]
  - Bipolar disorder [Unknown]
  - Mania [Unknown]
  - Depression [Unknown]
